FAERS Safety Report 7629587-2 (Version None)
Quarter: 2011Q3

REPORT INFORMATION
  Report Type: 
  Country: None (occurrence: None)
  Receive Date: 20110722
  Receipt Date: 20110721
  Transmission Date: 20111222
  Serious: Yes (Hospitalization)
  Sender: FDA-Public Use
  Company Number: BE-ROCHE-677568

PATIENT
  Sex: Male
  Weight: 57.5 kg

DRUGS (7)
  1. PEGINTERFERON ALFA-2A [Suspect]
     Indication: HEPATITIS C
     Route: 058
     Dates: start: 20091204
  2. QUINAPRIL HCL [Concomitant]
     Indication: HYPERTENSION
     Dosage: START DATE: { 2008
     Route: 048
  3. GLUCOSAMINE [Concomitant]
     Route: 048
  4. TRAMADOL HCL [Concomitant]
     Dosage: START DATE {2008. FREQ: OCCASSIONAL.
     Route: 048
  5. RIBAVIRIN [Suspect]
     Indication: HEPATITIS C
     Route: 048
     Dates: start: 20091204
  6. ALENDRONATE SODIUM [Concomitant]
     Indication: OSTEOPOROSIS
     Dosage: START DATE {2008
     Route: 048
  7. ZOLPIDEM [Concomitant]
     Indication: INSOMNIA
     Route: 048

REACTIONS (1)
  - LOSS OF CONSCIOUSNESS [None]
